FAERS Safety Report 6260572-1 (Version None)
Quarter: 2009Q2

REPORT INFORMATION
  Report Type: 
  Country: None (occurrence: None)
  Receive Date: 20090624
  Receipt Date: 20090611
  Transmission Date: 20091009
  Serious: Yes (Hospitalization)
  Sender: FDA-Public Use
  Company Number: GAM-092-09-AU

PATIENT
  Age: 49 Year
  Sex: Male

DRUGS (1)
  1. OCTAGAM [Suspect]
     Indication: CHRONIC INFLAMMATORY DEMYELINATING POLYRADICULONEUROPATHY
     Dates: start: 20090506, end: 20090506

REACTIONS (3)
  - EXTRASYSTOLES [None]
  - HEART RATE DECREASED [None]
  - INFUSION RELATED REACTION [None]
